FAERS Safety Report 10472266 (Version 1)
Quarter: 2014Q3

REPORT INFORMATION
  Report Type: Other
  Country: DE (occurrence: DE)
  Receive Date: 20140924
  Receipt Date: 20140924
  Transmission Date: 20150326
  Serious: Yes (Hospitalization, Other)
  Sender: FDA-Public Use
  Company Number: DE-SUN PHARMACEUTICAL INDUSTRIES LTD-2014SUN02106

PATIENT
  Age: 0 Year
  Sex: Male
  Weight: 1.97 kg

DRUGS (6)
  1. ZELDOX [Suspect]
     Active Substance: ZIPRASIDONE
     Indication: SCHIZOPHRENIA
     Dosage: UNK
     Route: 064
     Dates: start: 20130127, end: 20130921
  2. VENLAFAXIN DURA 75 RET. [Suspect]
     Active Substance: VENLAFAXINE HYDROCHLORIDE
     Indication: EATING DISORDER
     Dosage: 75 MG, QD
     Route: 064
     Dates: start: 20130127, end: 20130921
  3. DOXEPIN [Suspect]
     Active Substance: DOXEPIN
     Indication: ANXIETY DISORDER
     Dosage: 50 MG, QD, UNTIL AUG 2013
     Route: 064
  4. AMITRIPTYLIN [Suspect]
     Active Substance: AMITRIPTYLINE
     Indication: DEPRESSION
     Dosage: 75 MG, QD
     Route: 064
     Dates: start: 20130127, end: 20130921
  5. VENLAFAXINE HYDROCHLORIDE 37.5MG TABLET [Suspect]
     Active Substance: VENLAFAXINE HYDROCHLORIDE
     Indication: EATING DISORDER
     Dosage: 75 MG, BID
     Route: 064
     Dates: start: 20130127, end: 20130921
  6. AMITRIPTYLIN-NEURAXPHARM 100 [Suspect]
     Active Substance: AMITRIPTYLINE
     Indication: DEPRESSION
     Dosage: 100 MG, QD
     Route: 064

REACTIONS (5)
  - Foetal exposure during pregnancy [Recovered/Resolved]
  - Foetal monitoring abnormal [Recovered/Resolved]
  - Feeding disorder neonatal [Recovered/Resolved]
  - Neonatal respiratory distress syndrome [Recovered/Resolved]
  - Premature baby [Recovered/Resolved]

NARRATIVE: CASE EVENT DATE: 2013
